FAERS Safety Report 4318340-3 (Version None)
Quarter: 2004Q1

REPORT INFORMATION
  Report Type: 
  Country: None (occurrence: None)
  Receive Date: 20040312
  Receipt Date: 20040303
  Transmission Date: 20041129
  Serious: Yes (Disabling, Other)
  Sender: FDA-Public Use
  Company Number: HQWYE560427JAN04

PATIENT
  Age: 14 Year
  Sex: Female
  Weight: 58.11 kg

DRUGS (10)
  1. EFFEXOR XR [Suspect]
     Indication: MIGRAINE
     Dosage: SEE IMAGE
     Route: 048
     Dates: start: 20000801, end: 20010101
  2. EFFEXOR XR [Suspect]
     Indication: MIGRAINE
     Dosage: SEE IMAGE
     Route: 048
     Dates: start: 20010101, end: 20020101
  3. EFFEXOR XR [Suspect]
     Indication: MIGRAINE
     Dosage: SEE IMAGE
     Route: 048
     Dates: start: 20020101, end: 20020101
  4. EFFEXOR XR [Suspect]
     Indication: MIGRAINE
     Dosage: SEE IMAGE
     Route: 048
     Dates: start: 20020101, end: 20020101
  5. EFFEXOR XR [Suspect]
     Indication: MIGRAINE
     Dosage: SEE IMAGE
     Route: 048
     Dates: start: 20020101, end: 20020101
  6. PHENERGAN [Concomitant]
  7. TRAZODONE HCL [Concomitant]
  8. VIOXX [Concomitant]
  9. ROBAXIN [Concomitant]
  10. MELATONIN (MELATONIN) [Concomitant]

REACTIONS (30)
  - AGGRESSION [None]
  - AGITATION [None]
  - ANGER [None]
  - BELLIGERENCE [None]
  - CONDITION AGGRAVATED [None]
  - DISINHIBITION [None]
  - DISTURBANCE IN SOCIAL BEHAVIOUR [None]
  - DRUG INEFFECTIVE [None]
  - DRUG WITHDRAWAL SYNDROME [None]
  - EUPHORIC MOOD [None]
  - FEELING ABNORMAL [None]
  - FEELING JITTERY [None]
  - IMPULSE-CONTROL DISORDER [None]
  - INTENTIONAL SELF-INJURY [None]
  - MALAISE [None]
  - MIGRAINE [None]
  - MOOD SWINGS [None]
  - MUSCLE CRAMP [None]
  - MUSCULOSKELETAL STIFFNESS [None]
  - MYALGIA [None]
  - NAUSEA [None]
  - PERSONALITY CHANGE [None]
  - PHOTOPHOBIA [None]
  - SCREAMING [None]
  - SELF ESTEEM DECREASED [None]
  - SKIN LACERATION [None]
  - SUICIDAL IDEATION [None]
  - SUICIDE ATTEMPT [None]
  - VERTIGO [None]
  - WEIGHT INCREASED [None]
